FAERS Safety Report 5095525-2 (Version None)
Quarter: 2006Q3

REPORT INFORMATION
  Report Type: 
  Country: None (occurrence: None)
  Receive Date: 20060831
  Receipt Date: 20060831
  Transmission Date: 20061208
  Serious: Yes (Hospitalization, Other)
  Sender: FDA-Public Use
  Company Number: None

PATIENT
  Sex: Male
  Weight: 74.8435 kg

DRUGS (2)
  1. KLONOPIN [Suspect]
     Indication: ANXIETY
     Dosage: 0.5 MG 3X -4X DAY ORALLY
     Route: 048
     Dates: start: 20060816, end: 20060820
  2. KLONOPIN [Suspect]
     Indication: PANIC DISORDER
     Dosage: 0.5 MG 3X -4X DAY ORALLY
     Route: 048
     Dates: start: 20060816, end: 20060820

REACTIONS (8)
  - ABNORMAL BEHAVIOUR [None]
  - AGGRESSION [None]
  - ANGER [None]
  - ANXIETY [None]
  - CONFUSIONAL STATE [None]
  - HOSTILITY [None]
  - PANIC ATTACK [None]
  - PERSONALITY CHANGE [None]
